FAERS Safety Report 9159943 (Version 2)
Quarter: 2013Q2

REPORT INFORMATION
  Report Type: Spontaneous
  Country: FR (occurrence: FR)
  Receive Date: 20130313
  Receipt Date: 20130410
  Transmission Date: 20140414
  Serious: Yes (Death)
  Sender: FDA-Public Use
  Company Number: FR-B.I. PHARMACEUTICALS,INC./RIDGEFIELD-2013-FF-00703FF

PATIENT
  Age: 91 Year
  Sex: Male
  Weight: 85 kg

DRUGS (8)
  1. PRADAXA [Suspect]
     Dosage: 220 MG
  2. ALDACTONE [Concomitant]
  3. BISOCE [Concomitant]
     Dosage: 2.5 MG
  4. HEMIGOXINE [Concomitant]
  5. INEXIUM [Concomitant]
  6. LASILIX [Concomitant]
     Dosage: 40 MG
  7. PERMIXON [Concomitant]
     Dosage: 320 MG
  8. TARDYFERON [Concomitant]
     Dates: start: 20120925

REACTIONS (2)
  - Haemorrhage [Fatal]
  - Anaemia [Fatal]
